FAERS Safety Report 8835384 (Version 2)
Quarter: 2012Q4

REPORT INFORMATION
  Report Type: Report from Study
  Country: GB (occurrence: GB)
  Receive Date: 20121011
  Receipt Date: 20121107
  Transmission Date: 20130627
  Serious: Yes (Hospitalization)
  Sender: FDA-Public Use
  Company Number: GB-ROCHE-1142936

PATIENT
  Age: 82 Year
  Sex: Female
  Weight: 50.08 kg

DRUGS (3)
  1. RANIBIZUMAB [Suspect]
     Indication: AGE-RELATED MACULAR DEGENERATION
     Route: 050
     Dates: start: 20120607
  2. RANIBIZUMAB [Suspect]
     Route: 050
     Dates: start: 20120802
  3. ALENDRONIC ACID [Concomitant]

REACTIONS (4)
  - Ascites [Not Recovered/Not Resolved]
  - Generalised oedema [Not Recovered/Not Resolved]
  - Lethargy [Not Recovered/Not Resolved]
  - Adrenal mass [Not Recovered/Not Resolved]
